FAERS Safety Report 8079244-6 (Version None)
Quarter: 2012Q1

REPORT INFORMATION
  Report Type: 
  Country: None (occurrence: None)
  Receive Date: 20120128
  Receipt Date: 20110819
  Transmission Date: 20120608
  Serious: No
  Sender: FDA-Public Use
  Company Number: US-ABBOTT-11P-163-0848118-00

PATIENT
  Sex: Female
  Weight: 90.8 kg

DRUGS (9)
  1. METHOTREXATE [Suspect]
     Indication: RHEUMATOID ARTHRITIS
  2. HUMIRA [Suspect]
     Indication: RHEUMATOID ARTHRITIS
     Dates: start: 20110501
  3. LISINOPRIL [Concomitant]
     Indication: HYPERTENSION
  4. FLUOXETINE [Concomitant]
     Indication: PRODUCT USED FOR UNKNOWN INDICATION
  5. METFFORMIN HYDROCHLORIDE [Concomitant]
     Indication: DIABETES MELLITUS
  6. METOPROLOL TARTRATE [Concomitant]
     Indication: HYPERTENSION
  7. GLIPIZIDE [Concomitant]
     Indication: DIABETES MELLITUS
  8. CYMBALTA [Concomitant]
     Indication: PRODUCT USED FOR UNKNOWN INDICATION
  9. PLAVIX [Concomitant]
     Indication: CORONARY ARTERIAL STENT INSERTION

REACTIONS (2)
  - FATIGUE [None]
  - GINGIVAL PAIN [None]
